FAERS Safety Report 17230661 (Version 1)
Quarter: 2020Q1

REPORT INFORMATION
  Report Type: Spontaneous
  Country: GR (occurrence: GR)
  Receive Date: 20200103
  Receipt Date: 20200103
  Transmission Date: 20200409
  Serious: Yes (Death)
  Sender: FDA-Public Use
  Company Number: NVSC2020GR000485

PATIENT
  Age: 87 Year
  Sex: Female

DRUGS (4)
  1. ENTACAPONE. [Suspect]
     Active Substance: ENTACAPONE
     Indication: PARKINSONIAN CRISIS
     Dosage: 200 MG, Q6H
     Route: 048
  2. CO-BENELDOPA [Suspect]
     Active Substance: BENSERAZIDE HYDROCHLORIDE\LEVODOPA
     Indication: PARKINSONIAN CRISIS
     Dosage: 250 MG, Q6H
     Route: 048
  3. APOMORPHINE [Suspect]
     Active Substance: APOMORPHINE
     Indication: PARKINSONIAN CRISIS
     Dosage: 25 MG, Q4H (INTERMITTENT)
     Route: 058
  4. HYDROCORTISONE. [Suspect]
     Active Substance: HYDROCORTISONE
     Indication: PARKINSONIAN CRISIS
     Dosage: 250 MG, QD
     Route: 042

REACTIONS (3)
  - Parkinsonian crisis [Fatal]
  - Cardio-respiratory distress [Fatal]
  - Hyperthermia [Fatal]
